FAERS Safety Report 9310463 (Version 1)
Quarter: 2013Q2

REPORT INFORMATION
  Report Type: Spontaneous
  Country: US (occurrence: US)
  Receive Date: 20130527
  Receipt Date: 20130527
  Transmission Date: 20140414
  Serious: No
  Sender: FDA-Public Use
  Company Number: US-PFIZER INC-2013160119

PATIENT
  Sex: Female

DRUGS (4)
  1. GABAPENTIN [Suspect]
     Indication: PAIN
     Dosage: UNK
  2. OXYCODONE HYDROCHLORIDE [Suspect]
     Indication: PAIN
     Dosage: UNK
  3. MELOXICAM [Suspect]
     Indication: PAIN
     Dosage: UNK
  4. CYMBALTA [Suspect]
     Indication: PAIN
     Dosage: UNK

REACTIONS (1)
  - Drug effect incomplete [Unknown]
